FAERS Safety Report 6665716-5 (Version None)
Quarter: 2010Q2

REPORT INFORMATION
  Report Type: 
  Country: None (occurrence: None)
  Receive Date: 20100402
  Receipt Date: 20100324
  Transmission Date: 20101027
  Serious: Yes (Hospitalization)
  Sender: FDA-Public Use
  Company Number: IE-JNJFOC-20100300161

PATIENT
  Sex: Female

DRUGS (2)
  1. CAELYX [Suspect]
     Indication: OVARIAN CANCER
     Dosage: CYCLE 1
     Route: 042
  2. CAELYX [Suspect]
     Dosage: CYCLE 2
     Route: 042

REACTIONS (3)
  - CHEST DISCOMFORT [None]
  - NAUSEA [None]
  - VOMITING [None]
